FAERS Safety Report 5243191-5 (Version None)
Quarter: 2007Q1

REPORT INFORMATION
  Report Type: 
  Country: None (occurrence: None)
  Receive Date: 20070221
  Receipt Date: 20070212
  Transmission Date: 20070707
  Serious: Yes (Hospitalization, Other)
  Sender: FDA-Public Use
  Company Number: GB-PFIZER INC-2006132989

PATIENT
  Sex: Male
  Weight: 150 kg

DRUGS (19)
  1. FRAGMIN [Suspect]
     Indication: THROMBOSIS PROPHYLAXIS
     Route: 058
     Dates: start: 20060918, end: 20061024
  2. METRONIDAZOLE [Concomitant]
     Route: 042
  3. CEFTRIAXONE [Concomitant]
     Route: 042
  4. PHENYTOIN SODIUM [Concomitant]
  5. LISINOPRIL [Concomitant]
  6. SALBUTAMOL SULFATE [Concomitant]
  7. SODIUM CHLORIDE [Concomitant]
  8. VANCOMYCIN HYDROCHLORIDE [Concomitant]
     Route: 042
     Dates: start: 20061005, end: 20061010
  9. DIAZEPAM [Concomitant]
     Dates: start: 20061005, end: 20061015
  10. INSULIN [Concomitant]
     Route: 042
     Dates: start: 20060915, end: 20061010
  11. INSULATARD [Concomitant]
     Route: 058
  12. NORADRENALINE [Concomitant]
     Route: 042
  13. PARACETAMOL [Concomitant]
     Route: 042
  14. MIDAZOLAM HCL [Concomitant]
     Route: 042
  15. FRUSEMIDE [Concomitant]
     Route: 042
  16. PROPANOL [Concomitant]
     Route: 042
  17. ATRACURIUM BESYLATE [Concomitant]
     Route: 042
  18. CLONIDINE [Concomitant]
     Route: 042
  19. ALFENTANIL [Concomitant]
     Route: 042

REACTIONS (1)
  - DEEP VEIN THROMBOSIS [None]
